FAERS Safety Report 9365824 (Version 2)
Quarter: 2013Q2

REPORT INFORMATION
  Report Type: Report from Study
  Country: DE (occurrence: DE)
  Receive Date: 20130625
  Receipt Date: 20130627
  Transmission Date: 20140414
  Serious: Yes (Death, Life-Threatening, Hospitalization)
  Sender: FDA-Public Use
  Company Number: PHHY2013DE064394

PATIENT
  Sex: Female
  Weight: 107.9 kg

DRUGS (2)
  1. AFINITOR [Suspect]
     Indication: BREAST CANCER METASTATIC
     Dosage: 10 MG, QD
     Route: 048
     Dates: start: 20130417, end: 20130531
  2. EXEMESTANE [Concomitant]
     Indication: BREAST CANCER METASTATIC
     Dosage: 25 MG, QD
     Dates: start: 20130417, end: 20130531

REACTIONS (4)
  - Thrombocytopenia [Recovered/Resolved]
  - Malignant neoplasm progression [Fatal]
  - Breast cancer metastatic [Fatal]
  - Ascites [Recovered/Resolved]
